FAERS Safety Report 4949927-2 (Version None)
Quarter: 2006Q1

REPORT INFORMATION
  Report Type: 
  Country: None (occurrence: None)
  Receive Date: 20060315
  Receipt Date: 20060301
  Transmission Date: 20060701
  Serious: Yes (Other)
  Sender: FDA-Public Use
  Company Number: 2006030585

PATIENT
  Age: 31 Year
  Sex: Male
  Weight: 65.7716 kg

DRUGS (2)
  1. SUDAFED SINUS HEADACHE CAPLETS (PARACETAMOL, PSEUDOEPHEDRINE) [Suspect]
     Indication: NASAL CONGESTION
     Dosage: 2 CAPLETS 3 TIMES DAILY, ORAL
     Route: 048
     Dates: start: 20050601, end: 20050601
  2. CENTRUM (MINERALS NOS, VITAMINS NOS) [Concomitant]

REACTIONS (2)
  - AGEUSIA [None]
  - ANOSMIA [None]
